FAERS Safety Report 11093117 (Version 3)
Quarter: 2017Q1

REPORT INFORMATION
  Report Type: Spontaneous
  Country: JP (occurrence: JP)
  Receive Date: 20150506
  Receipt Date: 20170206
  Transmission Date: 20170428
  Serious: Yes (Hospitalization, Other)
  Sender: FDA-Public Use
  Company Number: JP-PFIZER INC-2015152671

PATIENT
  Age: 61 Year
  Sex: Male
  Weight: 76 kg

DRUGS (24)
  1. LEVOFOLINATE [Suspect]
     Active Substance: LEVOLEUCOVORIN CALCIUM
     Dosage: 350 MG, ONCE A DAY
     Route: 041
     Dates: start: 20150105, end: 20150105
  2. LEVOFOLINATE [Suspect]
     Active Substance: LEVOLEUCOVORIN CALCIUM
     Dosage: 350 MG, ONCE A DAY
     Route: 041
     Dates: start: 20150119, end: 20150119
  3. 5-FU [Suspect]
     Active Substance: FLUOROURACIL
     Dosage: 3360 MG, ONCE IN 2DAYS
     Route: 041
     Dates: start: 20140105, end: 20140105
  4. 5-FU [Suspect]
     Active Substance: FLUOROURACIL
     Dosage: 3360 MG, ONCE IN 2DAYS
     Route: 041
     Dates: start: 20150202, end: 20150202
  5. ELPLAT [Suspect]
     Active Substance: OXALIPLATIN
     Dosage: 120 MG, 1X/DAY
     Route: 041
     Dates: start: 20141217, end: 20141217
  6. ELPLAT [Suspect]
     Active Substance: OXALIPLATIN
     Dosage: 120 MG, 1X/DAY
     Route: 041
     Dates: start: 20150119, end: 20150119
  7. 5-FU [Suspect]
     Active Substance: FLUOROURACIL
     Dosage: 3360 MG, ONCE IN 2DAYS
     Route: 041
     Dates: start: 20141203, end: 20141203
  8. 5-FU [Suspect]
     Active Substance: FLUOROURACIL
     Dosage: 3360 MG, ONCE IN 2DAYS
     Route: 041
     Dates: start: 20141217, end: 20141217
  9. CAMPTO [Suspect]
     Active Substance: IRINOTECAN
     Dosage: 210 MG, 1X/DAY
     Route: 041
     Dates: start: 20141217, end: 20141217
  10. CAMPTO [Suspect]
     Active Substance: IRINOTECAN
     Dosage: 210 MG, 1X/DAY
     Route: 041
     Dates: start: 20150119, end: 20150119
  11. CAMPTO [Suspect]
     Active Substance: IRINOTECAN
     Dosage: 210 MG, 1X/DAY
     Route: 041
     Dates: start: 20150202, end: 20150202
  12. LEVOFOLINATE [Suspect]
     Active Substance: LEVOLEUCOVORIN CALCIUM
     Indication: PANCREATIC CARCINOMA
     Dosage: 360 MG,  ONCE A DAY
     Route: 041
     Dates: start: 20141023, end: 20141023
  13. LEVOFOLINATE [Suspect]
     Active Substance: LEVOLEUCOVORIN CALCIUM
     Dosage: 350 MG,  ONCE A DAY
     Route: 041
     Dates: start: 20141203, end: 20141203
  14. 5-FU [Suspect]
     Active Substance: FLUOROURACIL
     Dosage: 3360 MG, ONCE IN 2DAYS
     Route: 041
     Dates: start: 20150119, end: 20150119
  15. CAMPTO [Suspect]
     Active Substance: IRINOTECAN
     Indication: PANCREATIC CARCINOMA
     Dosage: 270 MG, 1X/DAY
     Route: 041
     Dates: start: 20141023, end: 20141023
  16. ELPLAT [Suspect]
     Active Substance: OXALIPLATIN
     Dosage: 120 MG, 1X/DAY
     Route: 041
     Dates: start: 20150105, end: 20150105
  17. 5-FU [Suspect]
     Active Substance: FLUOROURACIL
     Indication: PANCREATIC CARCINOMA
     Dosage: 4300 MG, ONCE IN 2DAYS;
     Route: 041
     Dates: start: 20141023, end: 20141023
  18. ELPLAT [Suspect]
     Active Substance: OXALIPLATIN
     Dosage: 120 MG, 1X/DAY
     Route: 041
     Dates: start: 20150202, end: 20150202
  19. ELPLAT [Suspect]
     Active Substance: OXALIPLATIN
     Indication: PANCREATIC CARCINOMA
     Dosage: 150 MG, 1X/DAY
     Route: 041
     Dates: start: 20141023, end: 20141023
  20. LEVOFOLINATE [Suspect]
     Active Substance: LEVOLEUCOVORIN CALCIUM
     Dosage: 350 MG,  ONCE A DAY
     Route: 041
     Dates: start: 20141217, end: 20141217
  21. LEVOFOLINATE [Suspect]
     Active Substance: LEVOLEUCOVORIN CALCIUM
     Dosage: 350 MG, ONCE A DAY
     Route: 041
     Dates: start: 20150202, end: 20150202
  22. CAMPTO [Suspect]
     Active Substance: IRINOTECAN
     Dosage: 210 MG, 1X/DAY
     Route: 041
     Dates: start: 20141203, end: 20141203
  23. CAMPTO [Suspect]
     Active Substance: IRINOTECAN
     Dosage: 210 MG, 1X/DAY
     Route: 041
     Dates: start: 20150105, end: 20150105
  24. ELPLAT [Suspect]
     Active Substance: OXALIPLATIN
     Dosage: 120 MG, 1X/DAY
     Route: 041
     Dates: start: 20141203, end: 20141203

REACTIONS (10)
  - Nausea [Recovered/Resolved]
  - Decreased appetite [Not Recovered/Not Resolved]
  - Duodenal ulcer [Unknown]
  - Neutrophil count decreased [Recovered/Resolved]
  - Peripheral sensory neuropathy [Not Recovered/Not Resolved]
  - Haemoglobin decreased [Recovering/Resolving]
  - White blood cell count decreased [Recovered/Resolved]
  - Palmar-plantar erythrodysaesthesia syndrome [Recovered/Resolved]
  - Diarrhoea [Recovered/Resolved]
  - Fatigue [Not Recovered/Not Resolved]

NARRATIVE: CASE EVENT DATE: 20141104
